FAERS Safety Report 5361578-7 (Version None)
Quarter: 2007Q2

REPORT INFORMATION
  Report Type: 
  Country: None (occurrence: None)
  Receive Date: 20070618
  Receipt Date: 20070618
  Transmission Date: 20071010
  Serious: Yes (Other)
  Sender: FDA-Public Use
  Company Number: None

PATIENT
  Sex: Male
  Weight: 81.6475 kg

DRUGS (2)
  1. WELLBUTRIN XL [Suspect]
     Indication: DEPRESSION
     Dosage: 300 MG ONE 047
     Dates: start: 20060501, end: 20060516
  2. WELLBUTRIN SR [Suspect]
     Indication: DEPRESSION
     Dosage: 100 MG TID 047
     Dates: start: 20010328, end: 20010419

REACTIONS (5)
  - ANHEDONIA [None]
  - DEPRESSED MOOD [None]
  - IRRITABILITY [None]
  - PHARMACEUTICAL PRODUCT COMPLAINT [None]
  - SLEEP DISORDER [None]
